FAERS Safety Report 4342781-1 (Version None)
Quarter: 2004Q2

REPORT INFORMATION
  Report Type: 
  Country: None (occurrence: None)
  Receive Date: 20040415
  Receipt Date: 20040405
  Transmission Date: 20050107
  Serious: Yes (Hospitalization)
  Sender: FDA-Public Use
  Company Number: WAES 0212USA00466

PATIENT
  Age: 76 Year
  Sex: Female

DRUGS (3)
  1. FOSAMAX [Suspect]
     Indication: SENILE OSTEOPOROSIS
     Dosage: 5 MG DAILY PO
     Route: 048
     Dates: start: 20021004, end: 20021130
  2. FOSAMAX [Suspect]
     Indication: SENILE OSTEOPOROSIS
     Dosage: 5 MG DAILY PO
     Route: 048
     Dates: start: 20021208, end: 20021220
  3. CALCIUM (UNSPECIFIED) (+) VITAMIN D (UNS [Concomitant]

REACTIONS (5)
  - BLOOD CREATINE PHOSPHOKINASE INCREASED [None]
  - HAEMATEMESIS [None]
  - NASOPHARYNGITIS [None]
  - OTITIS MEDIA [None]
  - REFLUX OESOPHAGITIS [None]
